FAERS Safety Report 14298181 (Version 1)
Quarter: 2017Q4

REPORT INFORMATION
  Report Type: Spontaneous
  Country: US (occurrence: US)
  Receive Date: 20171218
  Receipt Date: 20171218
  Transmission Date: 20180321
  Serious: No
  Sender: FDA-Public Use
  Company Number: US-BTG INTERNATIONAL, LTD.-2017BTG01384

PATIENT
  Age: 41 Year
  Sex: Female

DRUGS (6)
  1. VARITHENA [Suspect]
     Active Substance: POLIDOCANOL
     Dosage: 15 ML, UNK
     Dates: start: 20170920, end: 20170920
  2. VARITHENA [Suspect]
     Active Substance: POLIDOCANOL
     Dosage: UNK
     Dates: start: 20170927, end: 20170927
  3. VITAMIN D [Concomitant]
     Active Substance: CHOLECALCIFEROL
     Indication: PRODUCT USED FOR UNKNOWN INDICATION
  4. PROGESTERONE. [Concomitant]
     Active Substance: PROGESTERONE
     Indication: CONTRACEPTION
     Route: 048
  5. BENAZEPRIL AND HYDROCHLOROTHIAZIDE [Concomitant]
     Active Substance: BENAZEPRIL HYDROCHLORIDE\HYDROCHLOROTHIAZIDE
     Indication: HYPERTENSION
  6. VARITHENA [Suspect]
     Active Substance: POLIDOCANOL
     Indication: VEIN DISORDER
     Dosage: 15 ML, UNK
     Dates: start: 20170908, end: 20170908

REACTIONS (4)
  - Treatment noncompliance [Unknown]
  - No adverse event [Unknown]
  - Product quality issue [Unknown]
  - Therapy cessation [Unknown]

NARRATIVE: CASE EVENT DATE: 20170908
